FAERS Safety Report 17858152 (Version 13)
Quarter: 2022Q4

REPORT INFORMATION
  Report Type: Report from Study
  Country: US (occurrence: None)
  Receive Date: 20200604
  Receipt Date: 20221117
  Transmission Date: 20230113
  Serious: Yes (Hospitalization)
  Sender: FDA-Public Use
  Company Number: US-ROCHE-2603956

PATIENT
  Age: 19 Year
  Sex: Male
  Weight: 116.8 kg

DRUGS (43)
  1. MOSUNETUZUMAB [Suspect]
     Active Substance: MOSUNETUZUMAB
     Indication: B-cell lymphoma
     Dosage: DATE OF MOST RECENT DOSE OF STUDY DRUG PRIOR TO SAE 07/MAY/2020?DATE OF MOST RECENT DOSE OF STUDY DR
     Route: 042
     Dates: start: 20200508
  2. POLATUZUMAB VEDOTIN [Suspect]
     Active Substance: POLATUZUMAB VEDOTIN
     Indication: B-cell lymphoma
     Dosage: DATE OF MOST RECENT DOSE OF STUDY DRUG PRIOR TO SAE: 07/MAY/2020
     Route: 042
     Dates: start: 20200507
  3. CYCLOPHOSPHAMIDE [Suspect]
     Active Substance: CYCLOPHOSPHAMIDE
     Indication: B-cell lymphoma
     Dosage: TIME:18.30?MOST RECENT DOSE.
     Route: 042
     Dates: start: 20200507
  4. DOXORUBICIN [Suspect]
     Active Substance: DOXORUBICIN
     Indication: B-cell lymphoma
     Dosage: MOST RECENT DOSE
     Route: 042
     Dates: start: 20200507
  5. PREDNISONE [Suspect]
     Active Substance: PREDNISONE
     Indication: B-cell lymphoma
     Dosage: DATE OF MOST RECENT DOSE OF STUDY DRUG 4 PRIOR TO AE ONSET: 11/MAY/2020
     Route: 048
     Dates: start: 20200507
  6. PREDNISONE [Suspect]
     Active Substance: PREDNISONE
     Route: 048
     Dates: start: 20200504
  7. ZYLOPRIM [Concomitant]
     Active Substance: ALLOPURINOL
     Route: 048
     Dates: start: 20200504
  8. ZYLOPRIM [Concomitant]
     Active Substance: ALLOPURINOL
     Route: 048
     Dates: start: 20200518, end: 20200527
  9. ELIQUIS [Concomitant]
     Active Substance: APIXABAN
     Route: 048
     Dates: start: 20200413
  10. ACETAMINOPHEN\HYDROCODONE [Concomitant]
     Active Substance: ACETAMINOPHEN\HYDROCODONE
     Route: 048
     Dates: start: 20200504
  11. ACETAMINOPHEN\HYDROCODONE [Concomitant]
     Active Substance: ACETAMINOPHEN\HYDROCODONE
     Route: 048
     Dates: start: 20200518, end: 20200520
  12. DEXAMETHASONE [Concomitant]
     Active Substance: DEXAMETHASONE
     Route: 042
     Dates: start: 20200514, end: 20200514
  13. DEXAMETHASONE [Concomitant]
     Active Substance: DEXAMETHASONE
     Route: 042
     Dates: start: 20200520, end: 20200520
  14. FILGRASTIM SNDZ [Concomitant]
     Route: 042
     Dates: start: 20200520, end: 20200520
  15. FILGRASTIM SNDZ [Concomitant]
     Route: 042
     Dates: start: 20200521, end: 20200521
  16. FILGRASTIM SNDZ [Concomitant]
     Route: 042
     Dates: start: 20200522, end: 20200522
  17. ZOFRAN [Concomitant]
     Active Substance: ONDANSETRON HYDROCHLORIDE
     Route: 048
     Dates: start: 20200518
  18. ACETAMINOPHEN [Concomitant]
     Active Substance: ACETAMINOPHEN
     Route: 048
     Dates: start: 20200517, end: 20200517
  19. ACETAMINOPHEN [Concomitant]
     Active Substance: ACETAMINOPHEN
     Route: 048
     Dates: start: 20200507, end: 20200507
  20. ACETAMINOPHEN [Concomitant]
     Active Substance: ACETAMINOPHEN
     Route: 048
     Dates: start: 20200508, end: 20200508
  21. ACETAMINOPHEN [Concomitant]
     Active Substance: ACETAMINOPHEN
     Route: 048
     Dates: start: 20200514, end: 20200514
  22. ACETAMINOPHEN [Concomitant]
     Active Substance: ACETAMINOPHEN
     Route: 048
     Dates: start: 20200520, end: 20200520
  23. ACETAMINOPHEN [Concomitant]
     Active Substance: ACETAMINOPHEN
     Route: 048
     Dates: start: 20200527, end: 20200527
  24. ACETAMINOPHEN [Concomitant]
     Active Substance: ACETAMINOPHEN
     Route: 048
     Dates: start: 20200528, end: 20200528
  25. BENADRYL [Concomitant]
     Active Substance: DIPHENHYDRAMINE HYDROCHLORIDE
     Route: 048
     Dates: start: 20200508, end: 20200508
  26. BENADRYL [Concomitant]
     Active Substance: DIPHENHYDRAMINE HYDROCHLORIDE
     Route: 048
     Dates: start: 20200514, end: 20200514
  27. BENADRYL [Concomitant]
     Active Substance: DIPHENHYDRAMINE HYDROCHLORIDE
     Route: 048
     Dates: start: 20200520, end: 20200520
  28. BENADRYL [Concomitant]
     Active Substance: DIPHENHYDRAMINE HYDROCHLORIDE
     Route: 048
     Dates: start: 20200527, end: 20200527
  29. BENADRYL [Concomitant]
     Active Substance: DIPHENHYDRAMINE HYDROCHLORIDE
     Route: 048
     Dates: start: 20200528, end: 20200528
  30. MAGNESIUM OXIDE [Concomitant]
     Active Substance: MAGNESIUM OXIDE
     Route: 048
     Dates: start: 20200508, end: 20200510
  31. SEVELAMER CARBONATE [Concomitant]
     Active Substance: SEVELAMER CARBONATE
     Route: 048
     Dates: start: 20200509, end: 20200510
  32. MIRALAX [Concomitant]
     Active Substance: POLYETHYLENE GLYCOL 3350
     Route: 048
     Dates: start: 20200510, end: 20200511
  33. LEVOFLOXACIN [Concomitant]
     Active Substance: LEVOFLOXACIN
     Route: 048
     Dates: start: 20200520, end: 20200520
  34. HEPARIN [Concomitant]
     Active Substance: HEPARIN SODIUM
     Dosage: 500 U
     Route: 042
     Dates: start: 20200520, end: 20200520
  35. COMPAZINE [Concomitant]
     Active Substance: PROCHLORPERAZINE MALEATE
     Route: 048
     Dates: start: 20200507, end: 20200511
  36. COMPAZINE [Concomitant]
     Active Substance: PROCHLORPERAZINE MALEATE
     Route: 048
     Dates: start: 20200527, end: 20200529
  37. PALONOSETRON [Concomitant]
     Active Substance: PALONOSETRON
     Route: 042
     Dates: start: 20200507, end: 20200507
  38. FAMOTIDINE [Concomitant]
     Active Substance: FAMOTIDINE
     Route: 042
     Dates: start: 20200508, end: 20200508
  39. FAMOTIDINE [Concomitant]
     Active Substance: FAMOTIDINE
     Route: 042
     Dates: start: 20200520, end: 20200520
  40. FAMOTIDINE [Concomitant]
     Active Substance: FAMOTIDINE
     Route: 042
     Dates: start: 20200527, end: 20200527
  41. FAMOTIDINE [Concomitant]
     Active Substance: FAMOTIDINE
     Route: 042
     Dates: start: 20200528, end: 20200528
  42. PEGFILGRASTIM [Concomitant]
     Active Substance: PEGFILGRASTIM
     Route: 058
     Dates: start: 20200530, end: 20200530
  43. DULCOLAX (BISACODYL) [Concomitant]
     Active Substance: BISACODYL
     Route: 048
     Dates: start: 20200604

REACTIONS (2)
  - Neutrophil count decreased [Recovered/Resolved]
  - Headache [Recovered/Resolved]

NARRATIVE: CASE EVENT DATE: 20200517
